FAERS Safety Report 24576060 (Version 2)
Quarter: 2024Q4

REPORT INFORMATION
  Report Type: Other
  Country: IN (occurrence: IN)
  Receive Date: 20241104
  Receipt Date: 20241128
  Transmission Date: 20250114
  Serious: Yes (Death, Hospitalization, Other)
  Sender: LUPIN
  Company Number: IN-LUPIN PHARMACEUTICALS INC.-2024-10663

PATIENT

DRUGS (7)
  1. TIOTROPIUM BROMIDE [Suspect]
     Active Substance: TIOTROPIUM BROMIDE
     Indication: Pneumonia
     Dosage: UNK UNK, BID
     Dates: start: 20240922
  2. BUDESONIDE\FORMOTEROL FUMARATE [Suspect]
     Active Substance: BUDESONIDE\FORMOTEROL FUMARATE
     Indication: Pneumonia
     Dosage: UNK, BID
     Dates: start: 20230922
  3. METFORMIN [Suspect]
     Active Substance: METFORMIN HYDROCHLORIDE
     Indication: Blood glucose abnormal
     Dosage: UNK,  [METFORMIN 500 MG )
     Route: 065
  4. GLIMEPIRIDE [Suspect]
     Active Substance: GLIMEPIRIDE
     Indication: Blood glucose abnormal
     Dosage: UNK
     Route: 065
  5. ETOFYLLINE\MONTELUKAST\THEOPHYLLINE [Suspect]
     Active Substance: ETOFYLLINE\MONTELUKAST\THEOPHYLLINE
     Indication: Product used for unknown indication
     Dosage: UNK
     Route: 065
     Dates: start: 20240922
  6. LEVOFLOXACIN [Suspect]
     Active Substance: LEVOFLOXACIN
     Indication: Product used for unknown indication
     Dosage: UNK
     Route: 065
     Dates: start: 20240922
  7. LEVOCETIRIZINE DIHYDROCHLORIDE [Suspect]
     Active Substance: LEVOCETIRIZINE DIHYDROCHLORIDE
     Indication: Product used for unknown indication
     Dosage: UNK
     Route: 065
     Dates: start: 20240922

REACTIONS (13)
  - Septic shock [Fatal]
  - Cardiac failure [Fatal]
  - Pneumonia [Fatal]
  - Chest discomfort [Unknown]
  - Seizure [Unknown]
  - Condition aggravated [Unknown]
  - Tremor [Unknown]
  - Pyrexia [Unknown]
  - Blood glucose decreased [Unknown]
  - Cardiac disorder [Unknown]
  - Extra dose administered [Unknown]
  - Wrong product administered [Unknown]
  - Off label use [Unknown]
